FAERS Safety Report 20179950 (Version 1)
Quarter: 2021Q4

REPORT INFORMATION
  Report Type: Spontaneous
  Country: US (occurrence: US)
  Receive Date: 20211214
  Receipt Date: 20211214
  Transmission Date: 20220303
  Serious: No
  Sender: FDA-Public Use
  Company Number: US-TEVA-2021-US-1983916

PATIENT
  Age: 64 Year
  Sex: Female

DRUGS (1)
  1. PIMECROLIMUS [Suspect]
     Active Substance: PIMECROLIMUS
     Route: 065

REACTIONS (2)
  - Application site pain [Not Recovered/Not Resolved]
  - Application site mass [Not Recovered/Not Resolved]
